FAERS Safety Report 13341563 (Version 1)
Quarter: 2017Q1

REPORT INFORMATION
  Report Type: Spontaneous
  Country: US (occurrence: US)
  Receive Date: 20170315
  Receipt Date: 20170315
  Transmission Date: 20170428
  Serious: Yes (Hospitalization)
  Sender: FDA-Public Use
  Company Number: None

PATIENT
  Age: 40 Year
  Sex: Female

DRUGS (12)
  1. SINGULAIR [Concomitant]
     Active Substance: MONTELUKAST SODIUM
  2. CLONAZEPAM. [Concomitant]
     Active Substance: CLONAZEPAM
  3. XOLAIR [Suspect]
     Active Substance: OMALIZUMAB
     Indication: ASTHMA
     Route: 058
     Dates: start: 20130612
  4. KLONOPIN [Concomitant]
     Active Substance: CLONAZEPAM
  5. TRAMADONE [Concomitant]
  6. TRAZODONE [Concomitant]
     Active Substance: TRAZODONE HYDROCHLORIDE
  7. PROAIR HFA [Concomitant]
     Active Substance: ALBUTEROL SULFATE
  8. FERROUS [Concomitant]
     Active Substance: IRON
  9. MONTELUKAST [Concomitant]
     Active Substance: MONTELUKAST SODIUM
  10. HYDROMORPHON [Concomitant]
     Active Substance: HYDROMORPHONE
  11. DILAUDID [Concomitant]
     Active Substance: HYDROMORPHONE HYDROCHLORIDE
  12. ONDANSETERON [Concomitant]

REACTIONS (3)
  - Head injury [None]
  - Fall [None]
  - Concussion [None]

NARRATIVE: CASE EVENT DATE: 201702
